FAERS Safety Report 10428484 (Version 1)
Quarter: 2014Q3

REPORT INFORMATION
  Report Type: Spontaneous
  Country: US (occurrence: US)
  Receive Date: 20140903
  Receipt Date: 20140903
  Transmission Date: 20150326
  Serious: No
  Sender: FDA-Public Use
  Company Number: US-BAUSCH-SYM-2014-23668

PATIENT
  Age: 51 Year
  Sex: Female

DRUGS (2)
  1. LUZU [Suspect]
     Active Substance: LULICONAZOLE
     Indication: ONYCHOMYCOSIS
     Dosage: APPLY ON TOENAILS, TWICE A DAY
     Route: 061
     Dates: start: 20140606
  2. APPLE CIDER VINEGAR [Suspect]
     Active Substance: APPLE CIDER VINEGAR
     Indication: ONYCHOMYCOSIS
     Dosage: APPLY ON TOENAILS, TWICE A DAY
     Route: 061
     Dates: start: 20140606

REACTIONS (1)
  - Nail discolouration [Unknown]

NARRATIVE: CASE EVENT DATE: 201407
